FAERS Safety Report 20683750 (Version 2)
Quarter: 2022Q2

REPORT INFORMATION
  Report Type: Spontaneous
  Country: NL (occurrence: NL)
  Receive Date: 20220407
  Receipt Date: 20220504
  Transmission Date: 20220720
  Serious: Yes (Hospitalization, Other)
  Sender: FDA-Public Use
  Company Number: NL-PFIZER INC-202200484034

PATIENT
  Age: 23 Year
  Sex: Male

DRUGS (5)
  1. SILDENAFIL CITRATE [Suspect]
     Active Substance: SILDENAFIL CITRATE
     Indication: Pulmonary vascular resistance abnormality
     Dosage: 5 MG, 2X/DAY
     Dates: start: 2014
  2. SILDENAFIL CITRATE [Suspect]
     Active Substance: SILDENAFIL CITRATE
     Dosage: 20 MG, 3X/DAY, IN TITRATION SCHEME
     Dates: start: 2014, end: 2014
  3. TADALAFIL [Suspect]
     Active Substance: TADALAFIL
     Indication: Pulmonary vascular resistance abnormality
     Dosage: 5 MG, 1X/DAY
     Dates: start: 2014
  4. TADALAFIL [Suspect]
     Active Substance: TADALAFIL
     Dosage: 40 MG, 1X/DAY
     Dates: start: 2014, end: 2014
  5. BUMETANIDE [Suspect]
     Active Substance: BUMETANIDE
     Indication: Pulmonary vascular resistance abnormality
     Dosage: 2.5 MG, 1X/DAY Q.D.
     Dates: start: 2014, end: 2014

REACTIONS (1)
  - Ventilation perfusion mismatch [Unknown]

NARRATIVE: CASE EVENT DATE: 20140101
